FAERS Safety Report 4299954-6 (Version None)
Quarter: 2004Q1

REPORT INFORMATION
  Report Type: 
  Country: None (occurrence: None)
  Receive Date: 20040218
  Receipt Date: 20040205
  Transmission Date: 20041129
  Serious: Yes (Other)
  Sender: FDA-Public Use
  Company Number: NL-JNJFOC-20030802957

PATIENT

DRUGS (4)
  1. TOPIRAMATE [Suspect]
     Indication: MIGRAINE
     Dosage: SEE IMAGE
     Dates: end: 20030810
  2. TOPIRAMATE [Suspect]
     Indication: MIGRAINE
     Dosage: SEE IMAGE
     Dates: start: 20030701
  3. RELPAX (ELETRIPTAN HYDROBROMIDE) [Concomitant]
  4. DIANE (DIANE) [Concomitant]

REACTIONS (5)
  - BLINDNESS [None]
  - HEADACHE [None]
  - PARAESTHESIA [None]
  - VERTIGO [None]
  - VISUAL DISTURBANCE [None]
